FAERS Safety Report 20465873 (Version 2)
Quarter: 2022Q1

REPORT INFORMATION
  Report Type: Report from Study
  Country: US (occurrence: US)
  Receive Date: 20220212
  Receipt Date: 20220303
  Transmission Date: 20220423
  Serious: Yes (Death, Other)
  Sender: FDA-Public Use
  Company Number: US-TAKEDA-2022TUS009600

PATIENT
  Age: 65 Year
  Sex: Female

DRUGS (1)
  1. HUMAN IMMUNOGLOBULIN G [Suspect]
     Active Substance: HUMAN IMMUNOGLOBULIN G
     Indication: Product used for unknown indication
     Dosage: UNK
     Route: 042
     Dates: start: 20180101

REACTIONS (1)
  - Death [Fatal]

NARRATIVE: CASE EVENT DATE: 20220228
